FAERS Safety Report 25543052 (Version 1)
Quarter: 2025Q3

REPORT INFORMATION
  Report Type: Spontaneous
  Country: AU (occurrence: AU)
  Receive Date: 20250711
  Receipt Date: 20250711
  Transmission Date: 20251020
  Serious: Yes (Other)
  Sender: GLAXOSMITHKLINE
  Company Number: AU-GSK-AU2025083855

PATIENT
  Sex: Male

DRUGS (2)
  1. MOMELOTINIB DIHYDROCHLORIDE [Suspect]
     Active Substance: MOMELOTINIB DIHYDROCHLORIDE
     Indication: Myelofibrosis
  2. PREDNISONE [Concomitant]
     Active Substance: PREDNISONE
     Indication: Respiratory failure

REACTIONS (1)
  - Respiratory failure [Not Recovered/Not Resolved]
